FAERS Safety Report 8472463-6 (Version None)
Quarter: 2012Q2

REPORT INFORMATION
  Report Type: 
  Country: None (occurrence: None)
  Receive Date: 20120627
  Receipt Date: 20111019
  Transmission Date: 20120825
  Serious: No
  Sender: FDA-Public Use
  Company Number: US-AMGEN-USASP2011054577

PATIENT
  Sex: Male

DRUGS (1)
  1. PROCRIT [Suspect]
     Indication: HEPATITIS
     Dosage: UNK
     Dates: start: 20110901

REACTIONS (1)
  - GASTROOESOPHAGEAL REFLUX DISEASE [None]
